FAERS Safety Report 5126309-4 (Version None)
Quarter: 2006Q3

REPORT INFORMATION
  Report Type: 
  Country: None (occurrence: None)
  Receive Date: 20060825
  Receipt Date: 20060328
  Transmission Date: 20061208
  Serious: Yes (Death)
  Sender: FDA-Public Use
  Company Number: 06P-163-0323261-00

PATIENT
  Age: 75 Year
  Sex: Male

DRUGS (1)
  1. SYNTHROID [Suspect]
     Indication: THYROIDECTOMY
     Dosage: 250 MCG, 1 IN 1 D, PER ORAL
     Route: 048

REACTIONS (1)
  - DEATH [None]
